FAERS Safety Report 8986860 (Version 2)
Quarter: 2013Q4

REPORT INFORMATION
  Report Type: Spontaneous
  Country: FR (occurrence: FR)
  Receive Date: 20121226
  Receipt Date: 20131126
  Transmission Date: 20140711
  Serious: Yes (Life-Threatening)
  Sender: FDA-Public Use
  Company Number: FR-ROCHE-1173308

PATIENT
  Age: 41 Year
  Sex: Female

DRUGS (26)
  1. ROCEPHINE [Suspect]
     Indication: PRODUCT USED FOR UNKNOWN INDICATION
     Route: 042
     Dates: start: 20120714, end: 20120718
  2. DEPAKOTE [Suspect]
     Indication: PRODUCT USED FOR UNKNOWN INDICATION
     Route: 048
     Dates: start: 20110622, end: 20110627
  3. DEPAKOTE [Suspect]
     Route: 065
     Dates: start: 20110430, end: 20110606
  4. ZYPREXA [Suspect]
     Indication: PRODUCT USED FOR UNKNOWN INDICATION
     Route: 048
     Dates: start: 20110620, end: 20110704
  5. ZYPREXA [Suspect]
     Route: 065
     Dates: start: 20110430, end: 20110606
  6. TERALITHE [Suspect]
     Indication: PRODUCT USED FOR UNKNOWN INDICATION
     Route: 048
     Dates: start: 20110606, end: 20110703
  7. CYAMEMAZINE [Suspect]
     Indication: PRODUCT USED FOR UNKNOWN INDICATION
     Route: 065
     Dates: start: 20110606, end: 20110630
  8. IMOVANE [Suspect]
     Indication: PRODUCT USED FOR UNKNOWN INDICATION
     Route: 065
     Dates: start: 20110606
  9. PARKINANE [Suspect]
     Indication: PRODUCT USED FOR UNKNOWN INDICATION
     Route: 065
     Dates: start: 20110615, end: 20110704
  10. HALDOL [Suspect]
     Indication: PRODUCT USED FOR UNKNOWN INDICATION
     Route: 065
     Dates: start: 20110620, end: 20110630
  11. CIFLOX (FRANCE) [Suspect]
     Indication: PRODUCT USED FOR UNKNOWN INDICATION
     Route: 042
     Dates: start: 20120714, end: 20120718
  12. SERESTA [Concomitant]
     Route: 065
     Dates: start: 20110430, end: 20110606
  13. RISPERDAL [Concomitant]
     Route: 065
     Dates: start: 20110606, end: 20110620
  14. ATARAX (FRANCE) [Concomitant]
     Route: 065
     Dates: start: 20110627
  15. XYZALL [Concomitant]
     Route: 065
     Dates: start: 20110627
  16. ADRENALINE [Concomitant]
     Route: 065
  17. IMIPENEME [Concomitant]
  18. AMIKACINE [Concomitant]
  19. VANCOMYCINE [Concomitant]
  20. HYDROCORTISONE [Concomitant]
  21. DOBUTAMINE [Concomitant]
     Route: 065
     Dates: start: 20110731
  22. CYAMEMAZINE [Concomitant]
     Route: 065
     Dates: start: 20110811
  23. HYDROXYZINE [Concomitant]
     Route: 065
     Dates: start: 20110819
  24. KAYEXALATE [Concomitant]
  25. AMISULPRIDE [Concomitant]
  26. PREDNISONE [Concomitant]
     Route: 065

REACTIONS (2)
  - Drug reaction with eosinophilia and systemic symptoms [Recovered/Resolved]
  - Toxic epidermal necrolysis [Recovering/Resolving]
